FAERS Safety Report 6033441-X (Version None)
Quarter: 2009Q1

REPORT INFORMATION
  Report Type: 
  Country: None (occurrence: None)
  Receive Date: 20090109
  Receipt Date: 20081224
  Transmission Date: 20090719
  Serious: No
  Sender: FDA-Public Use
  Company Number: US-B.I. PHARMACEUTICALS,INC./RIDGEFIELD-2008-BP-16902BP

PATIENT
  Sex: Male

DRUGS (5)
  1. MIRAPEX [Suspect]
     Indication: PARKINSON'S DISEASE
     Dosage: 1.5MG
     Route: 048
     Dates: start: 20070501, end: 20080901
  2. MIRAPEX [Suspect]
     Dosage: 2.25MG
     Route: 048
     Dates: start: 20080901
  3. IBUPROFEN [Concomitant]
     Indication: MUSCLE RIGIDITY
     Route: 048
  4. KLONOPIN [Concomitant]
     Indication: SLEEP DISORDER
     Dosage: .5MG
     Route: 048
  5. CENTRUM CARDIO [Concomitant]

REACTIONS (3)
  - DENTAL CARIES [None]
  - LACRIMATION DECREASED [None]
  - LACRIMATION INCREASED [None]
